FAERS Safety Report 5893183-8 (Version None)
Quarter: 2008Q3

REPORT INFORMATION
  Report Type: 
  Country: None (occurrence: None)
  Receive Date: 20080922
  Receipt Date: 20080922
  Transmission Date: 20090109
  Serious: Yes (Life-Threatening, Hospitalization)
  Sender: FDA-Public Use
  Company Number: None

PATIENT
  Age: 62 Year
  Sex: Female
  Weight: 70.3075 kg

DRUGS (1)
  1. ZOCOR [Suspect]
     Indication: RHABDOMYOLYSIS
     Dosage: 20 MIL EVERYDAY PO
     Route: 048
     Dates: start: 20040706, end: 20051215

REACTIONS (2)
  - DRUG TOXICITY [None]
  - HEPATIC ENZYME INCREASED [None]
